FAERS Safety Report 9906051 (Version 1)
Quarter: 2014Q1

REPORT INFORMATION
  Report Type: Spontaneous
  Country: CA (occurrence: CA)
  Receive Date: 20140218
  Receipt Date: 20140218
  Transmission Date: 20141002
  Serious: Yes (Other)
  Sender: FDA-Public Use
  Company Number: CA-GE HEALTHCARE MEDICAL DIAGNOSTICS-VISP-PR-1402S-0038

PATIENT
  Age: 56 Year
  Sex: Female
  Weight: 51 kg

DRUGS (5)
  1. VISIPAQUE [Suspect]
     Indication: ABDOMINAL PAIN LOWER
     Route: 042
     Dates: start: 20140130, end: 20140130
  2. VISIPAQUE [Suspect]
     Indication: PELVIC PAIN
  3. VISIPAQUE [Suspect]
     Indication: DIAGNOSTIC PROCEDURE
  4. LEVOTHRYOXINE [Concomitant]
     Route: 048
     Dates: start: 2000
  5. SELENIUM [Concomitant]

REACTIONS (4)
  - Throat irritation [Unknown]
  - Sneezing [Unknown]
  - Ocular hyperaemia [Unknown]
  - Urticaria [Unknown]
